FAERS Safety Report 7735522-9 (Version None)
Quarter: 2011Q3

REPORT INFORMATION
  Report Type: 
  Country: None (occurrence: None)
  Receive Date: 20110907
  Receipt Date: 20110906
  Transmission Date: 20111222
  Serious: Yes (Other)
  Sender: FDA-Public Use
  Company Number: BR-BAYER-2011-082011

PATIENT
  Age: 18 Year
  Sex: Male

DRUGS (5)
  1. TYLENOL COLD [CHLORPHENAM MAL,PARACET,PHENYLPROPANOLAM HCL] [Concomitant]
     Indication: INFLUENZA
     Dosage: 1 DF, QD
     Route: 048
     Dates: start: 20110904
  2. BETASERON [Suspect]
     Dosage: 0.25 ML, QOD
     Route: 058
     Dates: start: 20110817
  3. BETASERON [Suspect]
     Dosage: 0.50 ML, QOD
     Route: 058
     Dates: start: 20110801, end: 20110801
  4. BETASERON [Suspect]
     Dosage: 0.25 ML, QOD
  5. BEROTEC [Concomitant]
     Indication: BRONCHITIS
     Dosage: 2-3 GTT, PRN
     Route: 048
     Dates: start: 20110905

REACTIONS (8)
  - PRESYNCOPE [None]
  - BACK PAIN [None]
  - CHEST PAIN [None]
  - CHILLS [None]
  - ERYTHEMA [None]
  - VOMITING [None]
  - INFLUENZA [None]
  - PYREXIA [None]
